FAERS Safety Report 18494810 (Version 2)
Quarter: 2020Q4

REPORT INFORMATION
  Report Type: Spontaneous
  Country: DE (occurrence: DE)
  Receive Date: 20201112
  Receipt Date: 20201218
  Transmission Date: 20210114
  Serious: Yes (Life-Threatening, Hospitalization, Other)
  Sender: FDA-Public Use
  Company Number: DE-TILLOMEDPR-2020-EPL-001805

PATIENT
  Age: 56 Month

DRUGS (2)
  1. TRANEXAMIC ACID. [Suspect]
     Active Substance: TRANEXAMIC ACID
     Indication: HAEMORRHAGE
     Dosage: 15 MILLIGRAM/KILOGRAM THREE SINGLE DOSES AT 12-H INTERVALS
     Route: 042
  2. URSODIOL. [Concomitant]
     Active Substance: URSODIOL
     Dosage: 300 MILLIGRAM/SQ. METER DAILY
     Route: 048

REACTIONS (1)
  - Venoocclusive liver disease [Recovered/Resolved]
